FAERS Safety Report 5287056-1 (Version None)
Quarter: 2007Q2

REPORT INFORMATION
  Report Type: 
  Country: None (occurrence: None)
  Receive Date: 20070404
  Receipt Date: 20070326
  Transmission Date: 20071010
  Serious: Yes (Other)
  Sender: FDA-Public Use
  Company Number: US-PFIZER INC-2007007329

PATIENT
  Sex: Male
  Weight: 80.7 kg

DRUGS (3)
  1. XALATAN [Suspect]
     Indication: OCULAR HYPERTENSION
     Dosage: DAILY DOSE:2DROP
     Route: 047
     Dates: start: 20060801, end: 20070121
  2. TOPROL-XL [Concomitant]
  3. TRICOR [Concomitant]

REACTIONS (3)
  - HEADACHE [None]
  - INTRAOCULAR PRESSURE INCREASED [None]
  - MUSCULOSKELETAL DISCOMFORT [None]
